FAERS Safety Report 17237719 (Version 16)
Quarter: 2020Q3

REPORT INFORMATION
  Report Type: Report from Study
  Country: DE (occurrence: DE)
  Receive Date: 20200106
  Receipt Date: 20200923
  Transmission Date: 20201102
  Serious: Yes (Hospitalization, Other)
  Sender: FDA-Public Use
  Company Number: DE-MYLANLABS-2020M1001236

PATIENT
  Sex: Female
  Weight: 48 kg

DRUGS (8)
  1. FASLODEX [Suspect]
     Active Substance: FULVESTRANT
     Dosage: 250 MILLIGRAM, QD (250 MG, QD (MONTHLY)
     Route: 030
     Dates: start: 20190228, end: 20190308
  2. KISQALI [Suspect]
     Active Substance: RIBOCICLIB
     Dosage: UNK
     Route: 065
     Dates: end: 20200422
  3. KISQALI [Suspect]
     Active Substance: RIBOCICLIB
     Dosage: 600 MILLIGRAM, QD (21 DAYS INTAKE, 7 DAYS PAUSE)
     Route: 048
     Dates: start: 20190527, end: 20190912
  4. KISQALI [Suspect]
     Active Substance: RIBOCICLIB
     Dosage: 600 MG, QD(21 DAYS INTAKE,7 DAYS PAUSE)
     Route: 048
     Dates: start: 20190515, end: 20190912
  5. KISQALI [Suspect]
     Active Substance: RIBOCICLIB
     Indication: BREAST CANCER METASTATIC
     Dosage: 600MG, QD(21 DAYS INTAKE,7 DAYS PAUSE)
     Route: 048
     Dates: start: 20190214, end: 20190422
  6. ANASTROZOLE. [Suspect]
     Active Substance: ANASTROZOLE
     Indication: BREAST CANCER METASTATIC
     Dosage: 1 MILLIGRAM, QD (1 MG, QD)
     Route: 048
     Dates: start: 20190527
  7. CALCIUM                            /00060701/ [Concomitant]
     Active Substance: CALCIUM
     Indication: HYPOCALCAEMIA
     Dosage: 1000 MILLIGRAM, TID 3 DAYS, AFTERWARDS 2 TABLETS
     Route: 065
     Dates: start: 20200701
  8. FASLODEX [Suspect]
     Active Substance: FULVESTRANT
     Indication: BREAST CANCER METASTATIC
     Dosage: 500 MG, QD (MONTHLY)
     Route: 030
     Dates: start: 20190214, end: 20190227

REACTIONS (37)
  - Pleural effusion [Recovered/Resolved]
  - Ingrowing nail [Recovered/Resolved]
  - Sleep disorder [Unknown]
  - Vomiting [Not Recovered/Not Resolved]
  - Cachexia [Not Recovered/Not Resolved]
  - Renal pain [Recovering/Resolving]
  - Hypocalcaemia [Recovering/Resolving]
  - Food intolerance [Recovered/Resolved]
  - Chills [Recovered/Resolved]
  - Underweight [Unknown]
  - Catheter site infection [Recovered/Resolved]
  - Pyrexia [Recovered/Resolved]
  - Asthenia [Recovered/Resolved]
  - Blood pressure systolic increased [Recovering/Resolving]
  - Pruritus [Recovered/Resolved]
  - Hypotension [Recovered/Resolved]
  - C-reactive protein increased [Not Recovered/Not Resolved]
  - Heart rate decreased [Unknown]
  - Weight decreased [Not Recovered/Not Resolved]
  - Hypertension [Recovering/Resolving]
  - Decreased appetite [Recovering/Resolving]
  - Nausea [Not Recovered/Not Resolved]
  - Cancer pain [Not Recovered/Not Resolved]
  - Hypertensive crisis [Recovered/Resolved]
  - Restlessness [Unknown]
  - Transaminases increased [Not Recovered/Not Resolved]
  - Oedema peripheral [Not Recovered/Not Resolved]
  - Lacrimation increased [Recovered/Resolved]
  - General physical health deterioration [Not Recovered/Not Resolved]
  - Hypersensitivity [Recovered/Resolved]
  - Nasopharyngitis [Recovered/Resolved]
  - Heart rate increased [Unknown]
  - Dyspnoea [Not Recovered/Not Resolved]
  - Constipation [Recovered/Resolved]
  - Urinary retention [Recovered/Resolved]
  - Tumour flare [Unknown]
  - Animal bite [Recovered/Resolved]

NARRATIVE: CASE EVENT DATE: 20190228
